FAERS Safety Report 9256835 (Version 1)
Quarter: 2013Q2

REPORT INFORMATION
  Report Type: Spontaneous
  Country: DE (occurrence: None)
  Receive Date: 20130417
  Receipt Date: 20130417
  Transmission Date: 20140414
  Serious: Yes (Other)
  Sender: FDA-Public Use
  Company Number: 2013035430

PATIENT
  Age: 34 Year
  Sex: Female

DRUGS (1)
  1. RHOPHYLAC [Suspect]
     Route: 030
     Dates: start: 20060509

REACTIONS (2)
  - Hepatitis C [None]
  - Suspected transmission of an infectious agent via product [None]
